FAERS Safety Report 8438261-4 (Version None)
Quarter: 2012Q2

REPORT INFORMATION
  Report Type: 
  Country: None (occurrence: None)
  Receive Date: 20120614
  Receipt Date: 20120612
  Transmission Date: 20120825
  Serious: Yes (Hospitalization)
  Sender: FDA-Public Use
  Company Number: PHHY2012BR045072

PATIENT
  Sex: Female
  Weight: 12 kg

DRUGS (1)
  1. AMOXICILLIN AND CLAVULANATE POTASSIUM [Suspect]
     Indication: PHARYNGITIS
     Dosage: UNK
     Route: 048
     Dates: start: 20120515, end: 20120521

REACTIONS (4)
  - RASH [None]
  - COUGH [None]
  - PHARYNGEAL OEDEMA [None]
  - VOMITING [None]
